FAERS Safety Report 12108711 (Version 1)
Quarter: 2016Q1

REPORT INFORMATION
  Report Type: Spontaneous
  Country: US (occurrence: None)
  Receive Date: 20160222
  Receipt Date: 20160222
  Transmission Date: 20160526
  Serious: No
  Sender: FDA-Public Use
  Company Number: None

PATIENT
  Age: 65 Year
  Sex: Male
  Weight: 61.24 kg

DRUGS (14)
  1. PROCHORPERAZINE MALEATE [Concomitant]
  2. 1-A-DAY 50+ADULT MULTIVITAMIN [Concomitant]
  3. ALLOPURINOL. [Concomitant]
     Active Substance: ALLOPURINOL
  4. CITALOPRAM [Concomitant]
     Active Substance: CITALOPRAM HYDROBROMIDE
  5. PANTOPRAZOLE [Concomitant]
     Active Substance: PANTOPRAZOLE SODIUM
  6. ACYCLOVIR. [Concomitant]
     Active Substance: ACYCLOVIR
  7. STOOL SOFTENER [Concomitant]
     Active Substance: DOCUSATE CALCIUM
  8. VITAMIN D3 [Concomitant]
     Active Substance: CHOLECALCIFEROL
  9. DEXAMETHASONE 4MG. ROXANE [Suspect]
     Active Substance: DEXAMETHASONE
     Indication: CHEMOTHERAPY
     Route: 048
  10. PREDNIDONE [Concomitant]
  11. FENTANYL TRANSDERMAL SYSTEM [Concomitant]
     Active Substance: FENTANYL
  12. CYCLOSPHAMIDE [Concomitant]
     Active Substance: CYCLOPHOSPHAMIDE
  13. ONDANSETRON [Concomitant]
     Active Substance: ONDANSETRON
  14. SUPPOSITORIES [Concomitant]

REACTIONS (1)
  - Hiccups [None]

NARRATIVE: CASE EVENT DATE: 20160220
